FAERS Safety Report 8514451 (Version 3)
Quarter: 2012Q4

REPORT INFORMATION
  Report Type: 
  Country: BR (occurrence: BR)
  Receive Date: 20120416
  Receipt Date: 20121031
  Transmission Date: 20130627
  Serious: Yes (Life-Threatening, Hospitalization)
  Sender: FDA-Public Use
  Company Number: BR-ASTRAZENECA-2012SE23593

PATIENT
  Age: 55 Year
  Sex: Male
  Weight: 73 kg

DRUGS (7)
  1. ATACAND HCT [Suspect]
     Indication: HYPERTENSION
     Dosage: 16/12.5 MG, DAILY
     Route: 048
     Dates: end: 20120306
  2. BRILINTA [Suspect]
     Indication: INFARCTION
     Route: 048
     Dates: start: 20120307, end: 2012
  3. BRILINTA [Suspect]
     Indication: INFARCTION
     Route: 048
     Dates: start: 2012
  4. OMEPRAZOLE [Concomitant]
     Indication: GASTRITIS PROPHYLAXIS
     Route: 065
  5. ASA [Concomitant]
  6. MONOCORDIL [Concomitant]
  7. DIVELOL [Concomitant]

REACTIONS (3)
  - Cardiac arrest [Recovered/Resolved]
  - Myocardial infarction [Recovered/Resolved]
  - Drug prescribing error [Recovered/Resolved]
